FAERS Safety Report 5017483-9 (Version None)
Quarter: 2006Q2

REPORT INFORMATION
  Report Type: 
  Country: None (occurrence: None)
  Receive Date: 20060414
  Receipt Date: 20060221
  Transmission Date: 20061013
  Serious: No
  Sender: FDA-Public Use
  Company Number: 2006SP000884

PATIENT
  Age: 71 Year
  Sex: Male
  Weight: 72.5755 kg

DRUGS (5)
  1. LUNESTA [Suspect]
     Indication: INSOMNIA
     Dosage: 2 MG;PRN;ORAL
     Route: 048
     Dates: start: 20060201, end: 20060201
  2. MICARDIS [Concomitant]
  3. ATENOLOL [Concomitant]
  4. AMLODIPINE [Concomitant]
  5. SIMVASTATIN [Concomitant]

REACTIONS (1)
  - INSOMNIA [None]
